FAERS Safety Report 11637836 (Version 1)
Quarter: 2015Q4

REPORT INFORMATION
  Report Type: Spontaneous
  Country: US (occurrence: US)
  Receive Date: 20151016
  Receipt Date: 20151016
  Transmission Date: 20160304
  Serious: Yes (Congenital Anomaly)
  Sender: FDA-Public Use
  Company Number: US-ABBVIE-15P-163-1478109-00

PATIENT
  Sex: Female

DRUGS (1)
  1. DEPAKOTE [Suspect]
     Active Substance: DIVALPROEX SODIUM
     Indication: MATERNAL EXPOSURE TIMING UNSPECIFIED
     Route: 064

REACTIONS (19)
  - Plagiocephaly [Unknown]
  - Developmental delay [Unknown]
  - Anhedonia [Unknown]
  - Macrocephaly [Unknown]
  - Congenital hand malformation [Unknown]
  - Congenital foot malformation [Unknown]
  - Injury [Unknown]
  - Foetal anticonvulsant syndrome [Unknown]
  - Arnold-Chiari malformation [Unknown]
  - Multiple congenital abnormalities [Unknown]
  - Emotional distress [Unknown]
  - Abnormal behaviour [Unknown]
  - Pain [Unknown]
  - Cerebral ventricle dilatation [Unknown]
  - Language disorder [Unknown]
  - Foetal exposure during pregnancy [Unknown]
  - Cognitive disorder [Unknown]
  - Congenital neurological disorder [Unknown]
  - Economic problem [Unknown]
